FAERS Safety Report 15397190 (Version 1)
Quarter: 2018Q3

REPORT INFORMATION
  Report Type: Other
  Country: US (occurrence: US)
  Receive Date: 20180918
  Receipt Date: 20180918
  Transmission Date: 20181010
  Serious: No
  Sender: FDA-Public Use
  Company Number: US-LEADIANT BIOSCIENCES INC-2018STPI000455

PATIENT
  Sex: Female

DRUGS (1)
  1. MATULANE [Suspect]
     Active Substance: PROCARBAZINE HYDROCHLORIDE
     Indication: BRAIN NEOPLASM MALIGNANT
     Dosage: 100 MG, QD EVERY NIGHT FOR 14 DAYS
     Route: 048
     Dates: start: 20180130

REACTIONS (4)
  - Muscular weakness [Unknown]
  - Varicose vein [Unknown]
  - Peripheral arterial occlusive disease [Unknown]
  - Hypoaesthesia [Unknown]
